FAERS Safety Report 10071880 (Version 2)
Quarter: 2014Q2

REPORT INFORMATION
  Report Type: Spontaneous
  Country: US (occurrence: US)
  Receive Date: 20140411
  Receipt Date: 20140411
  Transmission Date: 20141212
  Serious: Yes (Disabling, Other)
  Sender: FDA-Public Use
  Company Number: US-ROCHE-1374160

PATIENT
  Age: 74 Year
  Sex: Female

DRUGS (5)
  1. XELODA [Suspect]
     Indication: COLON CANCER
     Dosage: XELODA CYCLE OF 14 DAYS ON WITH 7 DAYS OFF.
     Route: 048
     Dates: start: 20140305
  2. XELODA [Suspect]
     Indication: PARAPROTEINAEMIA
  3. NEURONTIN (UNITED STATES) [Concomitant]
     Indication: NEUROPATHY PERIPHERAL
  4. LISINOPRIL [Concomitant]
  5. XANAX [Concomitant]

REACTIONS (7)
  - Joint lock [Not Recovered/Not Resolved]
  - Muscular weakness [Not Recovered/Not Resolved]
  - Neuropathy peripheral [Not Recovered/Not Resolved]
  - Myalgia [Not Recovered/Not Resolved]
  - Pain in extremity [Unknown]
  - Pain in extremity [Unknown]
  - Neuropathy peripheral [Not Recovered/Not Resolved]
